FAERS Safety Report 4784665-0 (Version None)
Quarter: 2005Q3

REPORT INFORMATION
  Report Type: 
  Country: None (occurrence: None)
  Receive Date: 20050930
  Receipt Date: 20050920
  Transmission Date: 20060218
  Serious: Yes (Hospitalization)
  Sender: FDA-Public Use
  Company Number: US-BRISTOL-MYERS SQUIBB COMPANY-13117353

PATIENT
  Age: 64 Year
  Sex: Male

DRUGS (3)
  1. CARDIOLITE [Suspect]
     Indication: CHEST PAIN
     Dates: start: 20050920
  2. NITROPASTE [Concomitant]
  3. ATENOLOL [Concomitant]

REACTIONS (3)
  - CARDIAC ARREST [None]
  - PROCEDURAL COMPLICATION [None]
  - SYNCOPE [None]
